FAERS Safety Report 24185078 (Version 2)
Quarter: 2024Q3

REPORT INFORMATION
  Report Type: Spontaneous
  Country: TW (occurrence: TW)
  Receive Date: 20240807
  Receipt Date: 20240812
  Transmission Date: 20241017
  Serious: Yes (Other)
  Sender: NOVARTIS
  Company Number: TW-002147023-NVSC2024TW158131

PATIENT
  Sex: Male

DRUGS (1)
  1. KYMRIAH [Suspect]
     Active Substance: TISAGENLECLEUCEL
     Indication: Diffuse large B-cell lymphoma refractory
     Dosage: UNK, ONCE/SINGLE
     Route: 065

REACTIONS (2)
  - B-cell aplasia [Recovered/Resolved]
  - Leukaemia recurrent [Unknown]
